FAERS Safety Report 23517223 (Version 1)
Quarter: 2024Q1

REPORT INFORMATION
  Report Type: 
  Country: None (occurrence: None)
  Receive Date: 20240213
  Receipt Date: 20240213
  Transmission Date: 20240409
  Serious: No
  Sender: FDA-Public Use
  Company Number: NL-ROCHE-3508194

PATIENT

DRUGS (3)
  1. CAPECITABINE [Suspect]
     Active Substance: CAPECITABINE
     Dosage: RECENT DOSE ON 13/OCT/2023
     Dates: start: 20230811
  2. BEVACIZUMAB [Suspect]
     Active Substance: BEVACIZUMAB
     Dosage: RECENT DOSE ON 21/AUG/2023
     Dates: start: 20230811
  3. OXALIPLATIN [Suspect]
     Active Substance: OXALIPLATIN
     Dosage: RECENT DOSE ON 13/OCT/2023
     Dates: start: 20230811

REACTIONS (1)
  - Gastrointestinal anastomotic leak [None]

NARRATIVE: CASE EVENT DATE: 20231126
